FAERS Safety Report 5520497-3 (Version None)
Quarter: 2007Q4

REPORT INFORMATION
  Report Type: 
  Country: None (occurrence: None)
  Receive Date: 20071119
  Receipt Date: 20071109
  Transmission Date: 20080405
  Serious: Yes (Other)
  Sender: FDA-Public Use
  Company Number: PHBS2007SE18970

PATIENT

DRUGS (1)
  1. SYNTOCINON [Suspect]
     Route: 064

REACTIONS (2)
  - CONVULSION [None]
  - DRUG EXPOSURE DURING PREGNANCY [None]
